FAERS Safety Report 5033942-7 (Version None)
Quarter: 2006Q2

REPORT INFORMATION
  Report Type: 
  Country: None (occurrence: None)
  Receive Date: 20060623
  Receipt Date: 20060620
  Transmission Date: 20061013
  Serious: Yes (Life-Threatening)
  Sender: FDA-Public Use
  Company Number: ES-MERCK-0606ESP00015

PATIENT
  Sex: Female

DRUGS (3)
  1. ZOCOR [Suspect]
     Route: 048
     Dates: start: 20060118
  2. SIBUTRAMINE HYDROCHLORIDE [Suspect]
     Route: 048
     Dates: start: 20060118
  3. LEVOTHYROXINE SODIUM [Concomitant]
     Route: 048
     Dates: start: 20060118

REACTIONS (2)
  - DRUG INTERACTION [None]
  - RHABDOMYOLYSIS [None]
